FAERS Safety Report 5482094-8 (Version None)
Quarter: 2007Q4

REPORT INFORMATION
  Report Type: 
  Country: None (occurrence: None)
  Receive Date: 20071011
  Receipt Date: 20071002
  Transmission Date: 20080405
  Serious: Yes (Hospitalization)
  Sender: FDA-Public Use
  Company Number: PHHO2007AR08505

PATIENT
  Age: 78 Year
  Sex: Female

DRUGS (5)
  1. ZELNORM [Suspect]
     Indication: IRRITABLE BOWEL SYNDROME
     Dosage: UNK, QD
  2. PAROXETINE [Concomitant]
  3. RIVOTRIL [Concomitant]
  4. LOTRIAL [Concomitant]
  5. ATENOLOL [Concomitant]

REACTIONS (5)
  - ANGIOPLASTY [None]
  - ANXIETY [None]
  - EMOTIONAL DISORDER [None]
  - MYOCARDIAL INFARCTION [None]
  - STENT PLACEMENT [None]
